FAERS Safety Report 23632637 (Version 1)
Quarter: 2024Q1

REPORT INFORMATION
  Report Type: Spontaneous
  Country: US (occurrence: None)
  Receive Date: 20240313
  Receipt Date: 20240313
  Transmission Date: 20240410
  Serious: No
  Sender: FDA-Public Use
  Company Number: None

PATIENT
  Sex: Male

DRUGS (18)
  1. TEMOZOLOMIDE [Suspect]
     Active Substance: TEMOZOLOMIDE
     Indication: Bone cancer
     Dosage: FREQ: TAKE 1 CAPSULE (5 MG) BY MOUTH ONCE DAILY WITH 2 OTHER TEMOZOLOMIDE PRESCRIPTIONS FOR 225 MG T
     Route: 048
     Dates: start: 20230211
  2. TEMOZOLOMIDE [Suspect]
     Active Substance: TEMOZOLOMIDE
     Indication: Bone cancer
  3. ACETAMINOPHN [Concomitant]
  4. CEFPODOXIME [Concomitant]
     Active Substance: CEFPODOXIME
  5. CITALOPRAM [Concomitant]
     Active Substance: CITALOPRAM HYDROBROMIDE
  6. CLEOCIN-T LOT 1% [Concomitant]
  7. DEXAMETHASONE [Concomitant]
     Active Substance: DEXAMETHASONE
  8. ELIQUIS [Concomitant]
     Active Substance: APIXABAN
  9. IBUPROFEN [Concomitant]
     Active Substance: IBUPROFEN
  10. LORAZEPAM [Concomitant]
     Active Substance: LORAZEPAM
  11. METHOCARBAMOL [Concomitant]
     Active Substance: METHOCARBAMOL
  12. MIRALAX POW NF [Concomitant]
  13. MYRBETRIQ [Concomitant]
     Active Substance: MIRABEGRON
  14. OLANZAPINE [Concomitant]
     Active Substance: OLANZAPINE
  15. OMEPRAZOLE [Concomitant]
     Active Substance: OMEPRAZOLE
  16. ONDANSETRON [Concomitant]
     Active Substance: ONDANSETRON
  17. PAXLOVID [Concomitant]
     Active Substance: NIRMATRELVIR\RITONAVIR
  18. SOLIFENACIN [Concomitant]
     Active Substance: SOLIFENACIN

REACTIONS (2)
  - Fatigue [None]
  - Inappropriate schedule of product administration [None]
